FAERS Safety Report 5122702-4 (Version None)
Quarter: 2006Q4

REPORT INFORMATION
  Report Type: 
  Country: None (occurrence: None)
  Receive Date: 20061004
  Receipt Date: 20060925
  Transmission Date: 20070319
  Serious: Yes (Disabling)
  Sender: FDA-Public Use
  Company Number: TCI2006A03430

PATIENT
  Age: 59 Year
  Sex: Female

DRUGS (6)
  1. ACTOS [Suspect]
     Indication: DIABETES MELLITUS
     Dosage: SEE IMAGE
     Route: 048
     Dates: start: 20050325, end: 20050701
  2. ACTOS [Suspect]
     Indication: DIABETES MELLITUS
     Dosage: SEE IMAGE
     Route: 048
     Dates: start: 20050702, end: 20060731
  3. NSAIDS (NSAID'S) [Suspect]
  4. BASEN (VOGLIBOSE) [Concomitant]
  5. LIPITOR [Concomitant]
  6. AMARYL [Concomitant]

REACTIONS (1)
  - RENAL FAILURE ACUTE [None]
